FAERS Safety Report 6457033 (Version 2)
Quarter: 2013Q1

REPORT INFORMATION
  Report Type: Spontaneous
  Country: US (occurrence: US)
  Receive Date: 20071101
  Receipt Date: 20130321
  Transmission Date: 20140127
  Serious: Yes (Hospitalization)
  Sender: FDA-Public Use
  Company Number: US-JNJFOC-20071006569

PATIENT
  Age: 41 Year
  Sex: Male

DRUGS (7)
  1. IBUPROFEN [Suspect]
     Indication: MALAISE
     Dosage: FOR 3 OR 4 DOSES
     Route: 048
  2. IBUPROFEN [Suspect]
     Indication: CHILLS
     Dosage: FOR 3 OR 4 DOSES
     Route: 048
  3. ACETAMINOPHEN\DEXTROMETHORPHAN HYDROBROMIDE\PSEUDOEPHEDRINE HYDROCHLORIDE [Concomitant]
     Indication: PRODUCT USED FOR UNKNOWN INDICATION
  4. TRIMETHOBENZAMIDE [Concomitant]
     Route: 030
  5. TRIMETHOPRIM/SULFAMETHOXAZOLE [Concomitant]
  6. HYCOSAMINE [Concomitant]
     Indication: ABDOMINAL PAIN
     Dosage: AS NEEDED
  7. PROCHLORPERAZINE [Concomitant]
     Indication: NAUSEA

REACTIONS (5)
  - Renal tubular necrosis [Recovering/Resolving]
  - Renal injury [Recovered/Resolved]
  - Glomerulonephritis minimal lesion [Recovering/Resolving]
  - Thrombotic microangiopathy [Recovering/Resolving]
  - Gastrointestinal tract irritation [Recovered/Resolved]
